FAERS Safety Report 8841710 (Version 1)
Quarter: 2012Q4

REPORT INFORMATION
  Report Type: Spontaneous
  Country: US (occurrence: None)
  Receive Date: 20121011
  Receipt Date: 20121011
  Transmission Date: 20130627
  Serious: Yes (Congenital Anomaly)
  Sender: FDA-Public Use
  Company Number: B0836576A

PATIENT
  Sex: Female

DRUGS (5)
  1. COMBIVIR [Suspect]
     Indication: HIV INFECTION
     Route: 064
  2. ATRIPLA [Suspect]
     Indication: HIV INFECTION
     Route: 064
  3. ATORVASTATIN CALCIUM [Suspect]
     Route: 064
  4. NELFINAVIR MESYLATE [Suspect]
     Indication: HIV INFECTION
     Route: 064
  5. INSULIN [Suspect]
     Indication: GESTATIONAL DIABETES
     Route: 064

REACTIONS (8)
  - Maternal drugs affecting foetus [None]
  - Cleft lip and palate [None]
  - Microphthalmos [None]
  - Congenital lacrimal passage anomaly [None]
  - Amniotic band syndrome [None]
  - Coloboma [None]
  - Micrognathia [None]
  - Anomaly of orbit, congenital [None]
